FAERS Safety Report 9882389 (Version 1)
Quarter: 2014Q1

REPORT INFORMATION
  Report Type: Report from Study
  Country: RU (occurrence: RU)
  Receive Date: 20140207
  Receipt Date: 20140207
  Transmission Date: 20141002
  Serious: Yes (Hospitalization, Other)
  Sender: FDA-Public Use
  Company Number: RU-GLAXOSMITHKLINE-B0966925A

PATIENT
  Age: 54 Year
  Sex: Male
  Weight: 97 kg

DRUGS (5)
  1. OMACOR [Suspect]
     Indication: MYOCARDIAL INFARCTION
     Dosage: 1000MG PER DAY
     Route: 048
     Dates: start: 20130620
  2. TICAGRELOR [Concomitant]
     Indication: MYOCARDIAL INFARCTION
     Dosage: 90MG TWICE PER DAY
     Route: 048
  3. ACETYL SALICYLIC ACID [Concomitant]
     Indication: MYOCARDIAL INFARCTION
     Dosage: 100MG PER DAY
     Route: 048
  4. BISOPROLOL [Concomitant]
     Indication: MYOCARDIAL INFARCTION
     Dosage: 5MG PER DAY
     Route: 048
  5. ROSUVASTATIN [Concomitant]
     Indication: MYOCARDIAL INFARCTION
     Dosage: 10MG PER DAY
     Route: 048

REACTIONS (3)
  - Acute myocardial infarction [Recovered/Resolved with Sequelae]
  - Angina pectoris [Recovered/Resolved with Sequelae]
  - Systolic dysfunction [Unknown]
